FAERS Safety Report 5405503-9 (Version None)
Quarter: 2007Q3

REPORT INFORMATION
  Report Type: 
  Country: None (occurrence: None)
  Receive Date: 20070803
  Receipt Date: 20070723
  Transmission Date: 20080115
  Serious: Yes (Other)
  Sender: FDA-Public Use
  Company Number: US-PFIZER INC-2007061291

PATIENT
  Sex: Female
  Weight: 61.363 kg

DRUGS (7)
  1. LYRICA [Suspect]
     Indication: NERVE INJURY
  2. LYRICA [Suspect]
     Indication: PAIN
  3. NEURONTIN [Concomitant]
  4. KLONOPIN [Concomitant]
  5. TRAMADOL HCL [Concomitant]
  6. TIZANIDINE HCL [Concomitant]
  7. POTASSIUM CHLORIDE [Concomitant]

REACTIONS (9)
  - ABDOMINAL DISCOMFORT [None]
  - BLOOD POTASSIUM DECREASED [None]
  - CHEST DISCOMFORT [None]
  - DYSPNOEA [None]
  - FLATULENCE [None]
  - OEDEMA PERIPHERAL [None]
  - PAIN [None]
  - TACHYCARDIA [None]
  - WEIGHT INCREASED [None]
